FAERS Safety Report 6273343-7 (Version None)
Quarter: 2009Q3

REPORT INFORMATION
  Report Type: 
  Country: None (occurrence: None)
  Receive Date: 20090715
  Receipt Date: 20090701
  Transmission Date: 20100115
  Serious: Yes (Other)
  Sender: FDA-Public Use
  Company Number: 8044762

PATIENT
  Age: 17 Year
  Sex: Male

DRUGS (2)
  1. KEPPRA [Suspect]
     Indication: EPILEPSY
  2. KEPPRA [Suspect]
     Indication: EPILEPSY
     Dosage: 30 MG/KG

REACTIONS (2)
  - ANAEMIA [None]
  - GRANULOCYTOPENIA [None]
